FAERS Safety Report 8367037-1 (Version None)
Quarter: 2012Q2

REPORT INFORMATION
  Report Type: 
  Country: None (occurrence: None)
  Receive Date: 20120517
  Receipt Date: 20120514
  Transmission Date: 20120825
  Serious: Yes (Death, Life-Threatening, Hospitalization, Other)
  Sender: FDA-Public Use
  Company Number: US-ACTELION-A-NJ2012-64604

PATIENT

DRUGS (4)
  1. SPIRONOLACTONE [Concomitant]
  2. LASIX [Concomitant]
  3. COUMADIN [Concomitant]
  4. VENTAVIS [Suspect]
     Indication: PULMONARY ARTERIAL HYPERTENSION
     Dosage: UNK
     Route: 055
     Dates: start: 20090414, end: 20120508

REACTIONS (6)
  - DEATH [None]
  - HIP FRACTURE [None]
  - HIP SURGERY [None]
  - MECHANICAL VENTILATION [None]
  - CARDIAC ARREST [None]
  - FALL [None]
